FAERS Safety Report 7155870-3 (Version None)
Quarter: 2010Q4

REPORT INFORMATION
  Report Type: 
  Country: None (occurrence: None)
  Receive Date: 20101214
  Receipt Date: 20101130
  Transmission Date: 20110411
  Serious: Yes (Death)
  Sender: FDA-Public Use
  Company Number: AT-PFIZER INC-2010170103

PATIENT
  Age: 53 Year
  Sex: Female

DRUGS (4)
  1. SERTRALINE HYDROCHLORIDE [Suspect]
     Dosage: 150 MG, UNK
     Route: 048
  2. JATROSOM [Interacting]
     Dosage: 70 MG, UNK
     Route: 048
  3. FLUOXETINE [Interacting]
     Indication: DEPRESSION
     Dosage: 30 MG, UNK
     Route: 048
  4. FLUOXETINE [Interacting]
     Dosage: 10 MG, UNK
     Route: 048

REACTIONS (9)
  - CARDIAC ARREST [None]
  - COMPLETED SUICIDE [None]
  - DISSEMINATED INTRAVASCULAR COAGULATION [None]
  - DRUG INTERACTION [None]
  - FOOD INTERACTION [None]
  - HAEMORRHAGE [None]
  - HYPERTHERMIA MALIGNANT [None]
  - RESPIRATORY FAILURE [None]
  - SEROTONIN SYNDROME [None]
